FAERS Safety Report 11329947 (Version 2)
Quarter: 2015Q4

REPORT INFORMATION
  Report Type: Spontaneous
  Country: JP (occurrence: JP)
  Receive Date: 20150803
  Receipt Date: 20151023
  Transmission Date: 20160304
  Serious: Yes (Death, Life-Threatening, Other)
  Sender: FDA-Public Use
  Company Number: JP-BAYER-2015-386975

PATIENT
  Age: 67 Year
  Sex: Male
  Weight: 70.3 kg

DRUGS (7)
  1. PIOGLITAZONE. [Concomitant]
     Active Substance: PIOGLITAZONE
     Dosage: 15 MG, OM
     Route: 048
  2. NEXAVAR [Suspect]
     Active Substance: SORAFENIB
     Indication: HEPATOCELLULAR CARCINOMA
     Dosage: 400 MG, QD
     Route: 048
     Dates: start: 20141016, end: 20141017
  3. AMARYL [Concomitant]
     Active Substance: GLIMEPIRIDE
     Dosage: 1 MG, OM
     Route: 048
  4. NEXAVAR [Suspect]
     Active Substance: SORAFENIB
     Indication: HEPATOCELLULAR CARCINOMA
     Dosage: 800 MG, QD
     Route: 048
     Dates: start: 20141006, end: 20141015
  5. MICARDIS [Concomitant]
     Active Substance: TELMISARTAN
     Dosage: 1 DF, OM
     Route: 048
  6. URSO [Concomitant]
     Active Substance: URSODIOL
     Dosage: DAILY DOSE 400 MG
     Route: 048
  7. URINORM [Concomitant]
     Active Substance: BENZBROMARONE
     Dosage: 1 DF, OM
     Route: 048

REACTIONS (8)
  - Lower gastrointestinal haemorrhage [Recovering/Resolving]
  - Hepatic encephalopathy [Recovered/Resolved]
  - Large intestinal ulcer [None]
  - Liver disorder [None]
  - Haematochezia [Recovering/Resolving]
  - Anaemia [None]
  - Malaise [None]
  - Hepatic failure [Fatal]

NARRATIVE: CASE EVENT DATE: 201410
